FAERS Safety Report 8936260 (Version 2)
Quarter: 2013Q4

REPORT INFORMATION
  Report Type: Spontaneous
  Country: CH (occurrence: CH)
  Receive Date: 20121130
  Receipt Date: 20131230
  Transmission Date: 20140711
  Serious: Yes (Other)
  Sender: FDA-Public Use
  Company Number: CH-SANOFI-AVENTIS-2012SA086303

PATIENT
  Age: 36 Year
  Sex: Female

DRUGS (3)
  1. LASIX [Suspect]
     Indication: HYPERTENSION
     Route: 064
     Dates: start: 20120928, end: 20120928
  2. CANDESARTAN CILEXETIL/HYDROCHLOROTHIAZIDE [Suspect]
     Indication: HYPERTENSION
     Route: 064
     Dates: start: 20121017, end: 20121024
  3. ATACAND [Suspect]
     Indication: HYPERTENSION
     Route: 064
     Dates: start: 20121024, end: 20121112

REACTIONS (4)
  - Oligohydramnios [Not Recovered/Not Resolved]
  - Premature baby [Recovered/Resolved]
  - Neonatal tachypnoea [Recovered/Resolved]
  - Exposure during pregnancy [Unknown]
